FAERS Safety Report 25241201 (Version 1)
Quarter: 2025Q2

REPORT INFORMATION
  Report Type: Spontaneous
  Country: US (occurrence: US)
  Receive Date: 20250425
  Receipt Date: 20250425
  Transmission Date: 20250716
  Serious: Yes (Other)
  Sender: ANI
  Company Number: US-ANIPHARMA-2025-US-019216

PATIENT
  Age: 43 Year
  Sex: Male

DRUGS (2)
  1. PROPRANOLOL HYDROCHLORIDE [Suspect]
     Active Substance: PROPRANOLOL HYDROCHLORIDE
     Indication: Arrhythmia
  2. DILTIAZEM [Suspect]
     Active Substance: DILTIAZEM
     Indication: Arrhythmia
     Route: 042

REACTIONS (1)
  - Cardio-respiratory arrest [Unknown]
